FAERS Safety Report 15235253 (Version 1)
Quarter: 2018Q3

REPORT INFORMATION
  Report Type: Spontaneous
  Country: IT (occurrence: IT)
  Receive Date: 20180803
  Receipt Date: 20180803
  Transmission Date: 20181010
  Serious: Yes (Hospitalization)
  Sender: FDA-Public Use
  Company Number: IT-TEVA-2018-IT-934719

PATIENT
  Age: 21 Year
  Sex: Female

DRUGS (3)
  1. ALPRAZOLAM. [Suspect]
     Active Substance: ALPRAZOLAM
     Indication: ANXIETY
     Route: 048
     Dates: start: 20180601, end: 20180601
  2. DEPAKIN [Concomitant]
     Active Substance: VALPROATE SODIUM
     Indication: OBSESSIVE THOUGHTS
     Dosage: 750 MILLIGRAM DAILY;
     Route: 048
     Dates: start: 20170101
  3. SERTRALINE [Concomitant]
     Active Substance: SERTRALINE HYDROCHLORIDE
     Indication: DEPRESSION
     Dosage: 100 MILLIGRAM DAILY;
     Route: 048
     Dates: start: 20170101

REACTIONS (3)
  - Sopor [Recovered/Resolved]
  - Therapy change [Recovered/Resolved]
  - Intentional self-injury [Recovered/Resolved]

NARRATIVE: CASE EVENT DATE: 20180601
